FAERS Safety Report 4489350-0 (Version None)
Quarter: 2004Q4

REPORT INFORMATION
  Report Type: 
  Country: None (occurrence: None)
  Receive Date: 20041029
  Receipt Date: 20041021
  Transmission Date: 20050328
  Serious: Yes (Other)
  Sender: FDA-Public Use
  Company Number: US-MERCK-0410USA03270

PATIENT
  Sex: Male

DRUGS (6)
  1. VIOXX [Suspect]
     Indication: ARTHRITIS
     Route: 048
  2. VIOXX [Suspect]
     Route: 048
  3. VIOXX [Suspect]
     Route: 048
  4. VIOXX [Suspect]
     Indication: POST PROCEDURAL PAIN
     Route: 048
  5. VIOXX [Suspect]
     Route: 048
  6. VIOXX [Suspect]
     Route: 048

REACTIONS (2)
  - MYOCARDIAL INFARCTION [None]
  - PRESCRIBED OVERDOSE [None]
